FAERS Safety Report 18387482 (Version 15)
Quarter: 2021Q3

REPORT INFORMATION
  Report Type: Report from Study
  Country: US (occurrence: US)
  Receive Date: 20201015
  Receipt Date: 20210824
  Transmission Date: 20211014
  Serious: No
  Sender: FDA-Public Use
  Company Number: NVSC2020US269208

PATIENT
  Age: 63 Year
  Sex: Female

DRUGS (7)
  1. COSENTYX [Suspect]
     Active Substance: SECUKINUMAB
     Dosage: 300 MG, Q4W
     Route: 058
     Dates: start: 202009
  2. COSENTYX [Suspect]
     Active Substance: SECUKINUMAB
     Dosage: 300 MG, Q4W
     Route: 058
     Dates: start: 20210312
  3. COSENTYX [Suspect]
     Active Substance: SECUKINUMAB
     Dosage: 300 MG, QMO
     Route: 058
     Dates: start: 20200901
  4. COSENTYX [Suspect]
     Active Substance: SECUKINUMAB
     Dosage: 300 MG
     Route: 058
     Dates: start: 20210212
  5. COSENTYX [Suspect]
     Active Substance: SECUKINUMAB
     Indication: PSORIASIS
     Dosage: 300 MG, 2 TIMES PER WEEK FOR FIVE WEEKS AND THEN 300 MG 2 TIMES PER MONTH
     Route: 058
     Dates: start: 20200927
  6. COSENTYX [Suspect]
     Active Substance: SECUKINUMAB
     Indication: PSORIATIC ARTHROPATHY
     Dosage: 300 MG, OTHER (300 MG Q WEEK FOR FIVE WEEKS AND THEN Q4W)
     Route: 058
     Dates: start: 20200925
  7. COSENTYX [Suspect]
     Active Substance: SECUKINUMAB
     Indication: PSORIASIS
     Dosage: 300 MG, 2 TIMES FIVE WEEKS AND THEN Q 4 WEEKS
     Route: 058
     Dates: start: 20200929

REACTIONS (19)
  - Skin reaction [Unknown]
  - Rhinorrhoea [Unknown]
  - Toothache [Unknown]
  - Erythema [Unknown]
  - Viral infection [Unknown]
  - Sneezing [Unknown]
  - Gingival pain [Unknown]
  - Cough [Unknown]
  - Psoriasis [Recovered/Resolved]
  - Alopecia [Unknown]
  - Arthralgia [Unknown]
  - Insomnia [Recovered/Resolved]
  - Pruritus [Unknown]
  - Skin exfoliation [Unknown]
  - Product prescribing error [Unknown]
  - Off label use [Unknown]
  - Psoriasis [Recovering/Resolving]
  - Back pain [Unknown]
  - Skin burning sensation [Unknown]

NARRATIVE: CASE EVENT DATE: 20200929
